FAERS Safety Report 7428803-X (Version None)
Quarter: 2011Q2

REPORT INFORMATION
  Report Type: 
  Country: None (occurrence: None)
  Receive Date: 20110421
  Receipt Date: 20110408
  Transmission Date: 20111010
  Serious: Yes (Hospitalization, Other)
  Sender: FDA-Public Use
  Company Number: CO-JNJFOC-20110404077

PATIENT
  Age: 32 Year
  Sex: Female

DRUGS (4)
  1. INVEGA [Suspect]
     Route: 048
  2. AKINETON [Concomitant]
     Route: 065
  3. INVEGA [Suspect]
     Indication: PSYCHOTIC DISORDER
     Route: 048
  4. HIDERAX [Concomitant]
     Route: 065

REACTIONS (4)
  - SALIVARY HYPERSECRETION [None]
  - AKATHISIA [None]
  - ADVERSE EVENT [None]
  - POSTURE ABNORMAL [None]
